FAERS Safety Report 9786410 (Version 1)
Quarter: 2013Q4

REPORT INFORMATION
  Report Type: Spontaneous
  Country: DK (occurrence: JP)
  Receive Date: 20131227
  Receipt Date: 20131227
  Transmission Date: 20140711
  Serious: Yes (Hospitalization)
  Sender: FDA-Public Use
  Company Number: JP-FRI-1000052466

PATIENT
  Age: 70 Year
  Sex: Male
  Weight: 46 kg

DRUGS (26)
  1. LEXAPRO [Suspect]
     Indication: DEMENTIA OF THE ALZHEIMER^S TYPE, WITH DEPRESSED MOOD
     Dosage: 10 MG
     Route: 048
     Dates: start: 20130924, end: 20131014
  2. CONTOMIN [Concomitant]
     Indication: PARANOIA
     Dosage: 50 MG
     Route: 048
     Dates: start: 20130815, end: 20130828
  3. CONTOMIN [Concomitant]
     Route: 048
     Dates: start: 20130815
  4. CONTOMIN [Concomitant]
     Route: 048
     Dates: start: 20130829, end: 20130901
  5. CONTOMIN [Concomitant]
     Route: 048
     Dates: start: 20130902, end: 20130904
  6. RISPERDAL [Concomitant]
     Indication: PARANOIA
     Dosage: 2 MG
     Route: 048
     Dates: start: 20130815, end: 20130821
  7. RISPERIDONE [Concomitant]
     Indication: PARANOIA
     Dosage: 3 MG
     Route: 048
     Dates: start: 20130822, end: 20130916
  8. TASMOLIN [Concomitant]
     Indication: PARKINSON^S DISEASE
     Dosage: 3 MG
     Route: 048
     Dates: start: 20130822, end: 20130828
  9. TASMOLIN [Concomitant]
     Dosage: 3 MG
     Route: 048
     Dates: start: 20130829, end: 20130901
  10. TASMOLIN [Concomitant]
     Dosage: 6 MG
     Route: 048
     Dates: start: 20130902, end: 20130918
  11. TASMOLIN [Concomitant]
     Dosage: 5 MG
     Route: 048
     Dates: start: 20130919, end: 20130923
  12. TASMOLIN [Concomitant]
     Dosage: 4 MG
     Route: 048
     Dates: start: 20130924, end: 20130925
  13. TASMOLIN [Concomitant]
     Dosage: 3 MG
     Route: 048
     Dates: start: 20130926, end: 20130929
  14. TASMOLIN [Concomitant]
     Dosage: 2 MG
     Route: 048
     Dates: start: 20130930, end: 20131002
  15. EURODIN [Concomitant]
     Indication: INSOMNIA
     Dosage: 1 MG
     Route: 048
     Dates: start: 20130819, end: 20130825
  16. EURODIN [Concomitant]
     Dosage: 2 MG
     Route: 048
     Dates: start: 20130826, end: 20131023
  17. MEMARY [Concomitant]
     Indication: DEMENTIA
     Dosage: 20 MG
     Route: 048
     Dates: start: 20130815, end: 20130916
  18. ETICALM [Concomitant]
     Dosage: 0.5 MG
     Route: 048
     Dates: start: 20130815
  19. TSUMURA YOKUKANSAN EXTRACT GRANULES FOR ETHICAL USE [Concomitant]
     Dosage: 3 DF
     Route: 048
     Dates: start: 20130815, end: 20130821
  20. SOLITA-T NO.3 [Concomitant]
     Dosage: 1000 ML
     Dates: start: 20130917, end: 20130917
  21. SOLITA-T NO.3 [Concomitant]
     Dosage: 1500 ML
     Dates: start: 20130918, end: 20130918
  22. SOLITA-T NO.3 [Concomitant]
     Dosage: 500 ML
     Dates: start: 20130919, end: 20130919
  23. C-PARA [Concomitant]
     Dosage: 2 ML
     Dates: start: 20130917, end: 20130918
  24. TARIVID [Concomitant]
     Dates: start: 20130926
  25. RACOL [Concomitant]
  26. AKINETON [Concomitant]
     Indication: PARKINSON^S DISEASE
     Dosage: 3 MG
     Route: 048
     Dates: start: 20130815, end: 20130821

REACTIONS (1)
  - Hepatic function abnormal [Recovering/Resolving]
